FAERS Safety Report 5014795-X (Version None)
Quarter: 2006Q2

REPORT INFORMATION
  Report Type: 
  Country: None (occurrence: None)
  Receive Date: 20060424
  Receipt Date: 20050718
  Transmission Date: 20061013
  Serious: Yes (Other)
  Sender: FDA-Public Use
  Company Number: WAES 0507USA02210

PATIENT
  Age: 20 Year
  Sex: Male

DRUGS (2)
  1. SINGULAIR [Suspect]
     Indication: ASTHMA
     Dosage: 10 MG/DAILY/PO
     Route: 048
     Dates: start: 19980101
  2. PROVENTIL [Concomitant]

REACTIONS (3)
  - BLOOD MAGNESIUM DECREASED [None]
  - CONVULSION [None]
  - PRESCRIBED OVERDOSE [None]
